FAERS Safety Report 7134868-5 (Version None)
Quarter: 2010Q4

REPORT INFORMATION
  Report Type: 
  Country: None (occurrence: None)
  Receive Date: 20101203
  Receipt Date: 20101129
  Transmission Date: 20110411
  Serious: Yes (Death, Hospitalization, Other)
  Sender: FDA-Public Use
  Company Number: US-BRISTOL-MYERS SQUIBB COMPANY-15413446

PATIENT
  Age: 69 Year
  Sex: Female

DRUGS (14)
  1. WARFARIN SODIUM [Suspect]
  2. REVATIO [Concomitant]
     Indication: PULMONARY HYPERTENSION
     Dosage: 80MG BEFORE SEP2009
     Route: 048
     Dates: start: 20100503, end: 20100804
  3. COZAAR [Concomitant]
  4. DICYCLOMINE [Concomitant]
  5. DICYCLOMINE [Concomitant]
  6. LIPITOR [Concomitant]
  7. ZYRTEC [Concomitant]
  8. NEXIUM [Concomitant]
  9. AZTREONAM [Concomitant]
  10. VANCOMYCIN [Concomitant]
  11. MULTI-VITAMINS [Concomitant]
  12. OXYCODONE HCL [Concomitant]
  13. TYLENOL-500 [Concomitant]
  14. VENTAVIS [Concomitant]

REACTIONS (9)
  - CARDIAC FAILURE CONGESTIVE [None]
  - COAGULOPATHY [None]
  - DEMENTIA [None]
  - EFFUSION [None]
  - HAEMOGLOBIN DECREASED [None]
  - HYPOTENSION [None]
  - PULMONARY HYPERTENSION [None]
  - RENAL FAILURE ACUTE [None]
  - ULCER HAEMORRHAGE [None]
